FAERS Safety Report 9701382 (Version 1)
Quarter: 2013Q4

REPORT INFORMATION
  Report Type: Spontaneous
  Country: US (occurrence: US)
  Receive Date: 20131121
  Receipt Date: 20131121
  Transmission Date: 20140711
  Serious: No
  Sender: FDA-Public Use
  Company Number: US-GILEAD-2008-0016873

PATIENT
  Age: 77 Year
  Sex: Female

DRUGS (16)
  1. LETAIRIS [Suspect]
     Indication: PULMONARY ARTERIAL HYPERTENSION
     Route: 048
     Dates: start: 20080521
  2. COZAAR [Concomitant]
  3. ATENOLOL [Concomitant]
  4. NORVASC [Concomitant]
  5. IMDUR [Concomitant]
  6. METFORMIN [Concomitant]
  7. ASA [Concomitant]
  8. LEXAPRO [Concomitant]
  9. AMOXICILLIN [Concomitant]
  10. LUNESTA [Concomitant]
  11. ULTRAM [Concomitant]
  12. GLUCOSAMINE [Concomitant]
  13. SYNTHROID [Concomitant]
  14. LASIX [Concomitant]
  15. CA++ [Concomitant]
  16. MVI [Concomitant]

REACTIONS (1)
  - Oedema peripheral [None]
